FAERS Safety Report 15429643 (Version 1)
Quarter: 2018Q3

REPORT INFORMATION
  Report Type: Spontaneous
  Country: US (occurrence: US)
  Receive Date: 20180920
  Receipt Date: 20180920
  Transmission Date: 20181010
  Serious: No
  Sender: FDA-Public Use
  Company Number: None

PATIENT
  Age: 38 Year
  Sex: Female

DRUGS (1)
  1. STELARA [Suspect]
     Active Substance: USTEKINUMAB
     Dates: start: 201706

REACTIONS (3)
  - Weight increased [None]
  - Micturition urgency [None]
  - Pollakiuria [None]

NARRATIVE: CASE EVENT DATE: 20180919
